FAERS Safety Report 26186262 (Version 1)
Quarter: 2025Q4

REPORT INFORMATION
  Report Type: Spontaneous
  Country: US (occurrence: US)
  Receive Date: 20251222
  Receipt Date: 20251222
  Transmission Date: 20260118
  Serious: No
  Sender: NEUROCRINE BIOSCIENCES
  Company Number: US-NEUROCRINE BIOSCIENCES INC.-2025NBI16512

PATIENT
  Sex: Male

DRUGS (5)
  1. CRENESSITY [Suspect]
     Active Substance: CRINECERFONT
     Indication: Product used for unknown indication
     Dosage: 100 MILLIGRAM, BID
     Route: 065
  2. HYDROCORTISONE [Concomitant]
     Active Substance: HYDROCORTISONE
     Dosage: 25 MILLIGRAM, QD (20 MG IN THE MORNING AND 5 MG IN THE EVENING)
     Route: 065
  3. HYDROCORTISONE [Concomitant]
     Active Substance: HYDROCORTISONE
     Dosage: 35 MILLIGRAM, QD (25 MG IN THE MORNING AND 10 MG IN THE EVENING
     Route: 065
  4. HYDROCORTISONE [Concomitant]
     Active Substance: HYDROCORTISONE
     Dosage: 35 MILLIGRAM, QD (25 MG IN THE MORNING AND 10 MG IN THE EVENING
     Route: 065
  5. FLUDROCORTISONE [Concomitant]
     Active Substance: FLUDROCORTISONE
     Dosage: 0.1 MILLIGRAM, NIGHTLY

REACTIONS (6)
  - 17-hydroxyprogesterone increased [Unknown]
  - Blood androstenedione increased [Unknown]
  - Blood corticotrophin abnormal [Unknown]
  - Blood follicle stimulating hormone decreased [Unknown]
  - Blood luteinising hormone decreased [Unknown]
  - Blood testosterone decreased [Unknown]
